FAERS Safety Report 9848901 (Version 1)
Quarter: 2014Q1

REPORT INFORMATION
  Report Type: Spontaneous
  Country: US (occurrence: None)
  Receive Date: 20140127
  Receipt Date: 20140127
  Transmission Date: 20141002
  Serious: No
  Sender: FDA-Public Use
  Company Number: None

PATIENT
  Age: 66 Year
  Sex: Female
  Weight: 85.73 kg

DRUGS (1)
  1. DEXTROMETHORPHAN POLILSTIREX [Suspect]
     Indication: NASOPHARYNGITIS
     Route: 048
     Dates: start: 20140124, end: 20140124

REACTIONS (1)
  - Dizziness [None]
